FAERS Safety Report 12409564 (Version 6)
Quarter: 2017Q3

REPORT INFORMATION
  Report Type: Spontaneous
  Country: DK (occurrence: DK)
  Receive Date: 20160526
  Receipt Date: 20170713
  Transmission Date: 20171127
  Serious: Yes (Other)
  Sender: FDA-Public Use
  Company Number: PHHY2016DK069395

PATIENT
  Age: 47 Year
  Sex: Female
  Weight: 100 kg

DRUGS (9)
  1. STELARA [Suspect]
     Active Substance: USTEKINUMAB
     Dosage: 90 MG, UNK 45 MG IN WEEK 0, 4, 16 (HEREAFTER EVERY 12 WEEK). 29 JUN 2015: 90 MG EVERY 10TH WEEK
     Route: 065
     Dates: start: 20150708
  2. METHOTREXATE. [Suspect]
     Active Substance: METHOTREXATE
     Indication: PSORIASIS
     Dosage: 10 MG, UNK
     Route: 065
     Dates: start: 2010, end: 20150708
  3. STELARA [Suspect]
     Active Substance: USTEKINUMAB
     Indication: PSORIASIS
     Dosage: 45 MG WEEK 0,4,16 (EVERY 10 WEEKS)
     Route: 065
     Dates: start: 20150629
  4. ENBREL [Suspect]
     Active Substance: ETANERCEPT
     Indication: PSORIASIS
     Dosage: 50 MG, QW
     Route: 058
     Dates: start: 20150708
  5. REMICADE [Suspect]
     Active Substance: INFLIXIMAB
     Indication: PSORIASIS
     Dosage: 5 MG/KG, UNK
     Route: 042
  6. STELARA [Suspect]
     Active Substance: USTEKINUMAB
     Dosage: 45 MG, QW (THEN EVERY 12 WEEKS)
     Route: 058
     Dates: start: 20150708
  7. COSENTYX [Suspect]
     Active Substance: SECUKINUMAB
     Indication: PSORIASIS
     Dosage: 300 MG, QMO (EVERY 4 WEEKS)
     Route: 058
     Dates: start: 20150629
  8. HUMIRA [Suspect]
     Active Substance: ADALIMUMAB
     Indication: PSORIASIS
     Dosage: 40 MG, BIW
     Route: 058
     Dates: end: 20100708
  9. COSENTYX [Suspect]
     Active Substance: SECUKINUMAB
     Dosage: 300 MG, QMO (EVERY 4 WEEKS)
     Route: 058
     Dates: start: 20151221

REACTIONS (1)
  - Lung neoplasm malignant [Recovered/Resolved with Sequelae]

NARRATIVE: CASE EVENT DATE: 201512
